FAERS Safety Report 23761342 (Version 1)
Quarter: 2024Q2

REPORT INFORMATION
  Report Type: Spontaneous
  Country: CA (occurrence: CA)
  Receive Date: 20240419
  Receipt Date: 20240419
  Transmission Date: 20240716
  Serious: Yes (Death)
  Sender: FDA-Public Use
  Company Number: CA-TEVA-VS-3184335

PATIENT
  Age: 16 Year
  Sex: Female

DRUGS (3)
  1. VINCRISTINE SULFATE [Suspect]
     Active Substance: VINCRISTINE SULFATE
     Indication: Medulloblastoma
     Dosage: DOSAGE FORM: NOT SPECIFIED
     Route: 065
  2. LOMUSTINE [Suspect]
     Active Substance: LOMUSTINE
     Indication: Medulloblastoma
     Dosage: DOSAGE FORM: NOT SPECIFIED, CCNU
     Route: 065
  3. CISPLATIN [Suspect]
     Active Substance: CISPLATIN
     Indication: Medulloblastoma
     Route: 065

REACTIONS (2)
  - Neoplasm progression [Fatal]
  - Off label use [Fatal]
